FAERS Safety Report 7481263-5 (Version None)
Quarter: 2011Q2

REPORT INFORMATION
  Report Type: 
  Country: None (occurrence: None)
  Receive Date: 20110512
  Receipt Date: 20110512
  Transmission Date: 20111010
  Serious: Yes (Death, Hospitalization)
  Sender: FDA-Public Use
  Company Number: None

PATIENT
  Age: 69 Year
  Sex: Male

DRUGS (1)
  1. DRONEDARONE HCL [Suspect]

REACTIONS (8)
  - CONDITION AGGRAVATED [None]
  - ORGANISING PNEUMONIA [None]
  - PULMONARY TOXICITY [None]
  - INTERSTITIAL LUNG DISEASE [None]
  - RESPIRATORY FAILURE [None]
  - ATRIAL FIBRILLATION [None]
  - DIFFUSE ALVEOLAR DAMAGE [None]
  - ACUTE RESPIRATORY DISTRESS SYNDROME [None]
